FAERS Safety Report 5201527-5 (Version None)
Quarter: 2007Q1

REPORT INFORMATION
  Report Type: 
  Country: None (occurrence: None)
  Receive Date: 20070108
  Receipt Date: 20061227
  Transmission Date: 20070707
  Serious: Yes (Other)
  Sender: FDA-Public Use
  Company Number: BR-PFIZER INC-2006153367

PATIENT
  Sex: Female

DRUGS (3)
  1. DEPO-PROVERA [Suspect]
     Indication: CONTRACEPTION
     Route: 030
     Dates: start: 20030101, end: 20030101
  2. DEPO-PROVERA [Suspect]
     Route: 030
     Dates: start: 20050701, end: 20050701
  3. MAGNESIUM [Concomitant]
     Route: 048

REACTIONS (5)
  - ACNE [None]
  - AMENORRHOEA [None]
  - INFERTILITY FEMALE [None]
  - OILY SKIN [None]
  - POLYCYSTIC OVARIES [None]
